FAERS Safety Report 20369985 (Version 1)
Quarter: 2022Q1

REPORT INFORMATION
  Report Type: Spontaneous
  Country: TH (occurrence: TH)
  Receive Date: 20220124
  Receipt Date: 20220124
  Transmission Date: 20220423
  Serious: Yes (Death)
  Sender: FDA-Public Use
  Company Number: TH-PFIZER INC-202200042815

PATIENT
  Age: 64 Year
  Sex: Female

DRUGS (2)
  1. XALKORI [Suspect]
     Active Substance: CRIZOTINIB
     Indication: Non-small cell lung cancer
     Dosage: 250 MG TWICE DAILY ALTERNATE WITH 250 MG ONCE DAILY
     Route: 048
     Dates: start: 20210211
  2. XALKORI [Suspect]
     Active Substance: CRIZOTINIB
     Dosage: 250 MG TWICE DAILY ALTERNATE WITH 250 MG ONCE DAILY
     Route: 048
     Dates: start: 20210211

REACTIONS (1)
  - Neoplasm progression [Fatal]
